FAERS Safety Report 10428232 (Version 1)
Quarter: 2014Q3

REPORT INFORMATION
  Report Type: Spontaneous
  Country: US (occurrence: US)
  Receive Date: 20140903
  Receipt Date: 20140903
  Transmission Date: 20150326
  Serious: Yes (Other)
  Sender: FDA-Public Use
  Company Number: US-BAXTER-2014BAX052246

PATIENT
  Age: 19 Year
  Sex: Male
  Weight: 59.3 kg

DRUGS (4)
  1. HEPARIN [Suspect]
     Active Substance: HEPARIN SODIUM
     Dosage: 1000 UNTIS/L
     Route: 010
     Dates: start: 20140822, end: 20140822
  2. BUMINATE [Suspect]
     Active Substance: ALBUMIN (HUMAN)
     Indication: PLASMAPHERESIS
     Route: 042
     Dates: start: 20140822
  3. 0.9% SODIUM CHLORIDE INJECTION [Suspect]
     Active Substance: SODIUM CHLORIDE
     Indication: PLASMAPHERESIS
     Route: 010
     Dates: start: 20140822
  4. HEPARIN [Suspect]
     Active Substance: HEPARIN SODIUM
     Indication: PLASMAPHERESIS
     Dosage: 500 UNITS/HR
     Route: 010
     Dates: start: 20140822

REACTIONS (2)
  - Haemorrhage [Unknown]
  - Device leakage [Unknown]

NARRATIVE: CASE EVENT DATE: 20140822
